FAERS Safety Report 16242375 (Version 1)
Quarter: 2019Q2

REPORT INFORMATION
  Report Type: Spontaneous
  Country: US (occurrence: US)
  Receive Date: 20190425
  Receipt Date: 20190425
  Transmission Date: 20190711
  Serious: Yes (Life-Threatening, Hospitalization)
  Sender: FDA-Public Use
  Company Number: None

PATIENT
  Age: 26 Year
  Sex: Female

DRUGS (3)
  1. VITAMINS [Concomitant]
     Active Substance: VITAMINS
  2. IBUPROFEN. [Concomitant]
     Active Substance: IBUPROFEN
  3. SKYLA [Suspect]
     Active Substance: LEVONORGESTREL

REACTIONS (6)
  - Cervix disorder [None]
  - Pregnancy with contraceptive device [None]
  - Complication associated with device [None]
  - Vaginal haemorrhage [None]
  - Thrombosis [None]
  - Abortion spontaneous [None]

NARRATIVE: CASE EVENT DATE: 20190424
